FAERS Safety Report 5311121-3 (Version None)
Quarter: 2007Q2

REPORT INFORMATION
  Report Type: 
  Country: None (occurrence: None)
  Receive Date: 20070426
  Receipt Date: 20070426
  Transmission Date: 20071010
  Serious: Yes (Life-Threatening, Other)
  Sender: FDA-Public Use
  Company Number: None

PATIENT
  Sex: Male
  Weight: 65.0458 kg

DRUGS (2)
  1. BACTRIM DS [Suspect]
     Indication: BODY TEMPERATURE INCREASED
     Dosage: DS 1 BID PO
     Route: 048
     Dates: start: 20070329
  2. BACTRIM DS [Suspect]
     Indication: BODY TEMPERATURE INCREASED
     Dosage: DS 1 BID PO
     Route: 048
     Dates: start: 20070330

REACTIONS (1)
  - STEVENS-JOHNSON SYNDROME [None]
